FAERS Safety Report 6694642-0 (Version None)
Quarter: 2010Q2

REPORT INFORMATION
  Report Type: 
  Country: None (occurrence: None)
  Receive Date: 20100423
  Receipt Date: 20100419
  Transmission Date: 20101027
  Serious: Yes (Life-Threatening, Hospitalization, Disabling, Other)
  Sender: FDA-Public Use
  Company Number: US-EISAI INC.-E7867-00111-CLI-US

PATIENT
  Sex: Male
  Weight: 104 kg

DRUGS (23)
  1. GLIADEL [Suspect]
     Indication: BRAIN CANCER METASTATIC
     Route: 018
     Dates: start: 20100211, end: 20100402
  2. KEPPRA [Concomitant]
     Indication: PROPHYLAXIS
     Route: 048
     Dates: start: 20100116
  3. PROTONIX [Concomitant]
     Indication: PROPHYLAXIS
     Route: 048
     Dates: start: 20100116
  4. HYDROCHLOROTHIAZIDE [Concomitant]
     Indication: HYPERTENSION
     Dosage: 20/12.5MG
     Route: 048
  5. VITAMIN B50 [Concomitant]
     Route: 048
  6. ESTER-C [Concomitant]
     Route: 048
  7. GLUCOSAMINE [Concomitant]
     Route: 048
  8. VITAMIN B COMPLEX CAP [Concomitant]
     Route: 048
  9. LOVAZA [Concomitant]
     Route: 048
  10. GINKO [Concomitant]
     Route: 048
  11. PSYLLIUM [Concomitant]
     Indication: CONSTIPATION PROPHYLAXIS
     Route: 048
  12. ASPIRIN [Concomitant]
     Route: 048
     Dates: end: 20100204
  13. DILANTIN [Concomitant]
     Indication: PROPHYLAXIS
     Route: 048
     Dates: start: 20100211
  14. DECADRON [Concomitant]
     Indication: INFLAMMATION
     Route: 048
     Dates: start: 20100222
  15. DECADRON [Concomitant]
     Route: 048
     Dates: start: 20100221, end: 20100222
  16. DECADRON [Concomitant]
     Route: 048
     Dates: start: 20100220, end: 20100221
  17. DECADRON [Concomitant]
     Route: 048
     Dates: start: 20100219, end: 20100220
  18. DECADRON [Concomitant]
     Route: 048
     Dates: start: 20100218, end: 20100219
  19. DECADRON [Concomitant]
     Route: 048
     Dates: start: 20100216, end: 20100218
  20. DECADRON [Concomitant]
     Route: 048
     Dates: start: 20100215, end: 20100216
  21. DECADRON [Concomitant]
     Route: 048
     Dates: start: 20100116
  22. FLORINEF [Concomitant]
     Route: 048
     Dates: start: 20100215, end: 20100301
  23. SALT [Concomitant]
     Route: 048
     Dates: start: 20100215, end: 20100301

REACTIONS (5)
  - ANAEMIA [None]
  - BRAIN MASS [None]
  - INFLAMMATION [None]
  - MUSCULAR WEAKNESS [None]
  - PULMONARY EMBOLISM [None]
